FAERS Safety Report 7978291-X (Version None)
Quarter: 2011Q4

REPORT INFORMATION
  Report Type: 
  Country: None (occurrence: None)
  Receive Date: 20111206
  Receipt Date: 20111128
  Transmission Date: 20120403
  Serious: Yes (Other)
  Sender: FDA-Public Use
  Company Number: 2011SP017925

PATIENT
  Sex: Female

DRUGS (1)
  1. NEXPLANON [Suspect]
     Indication: PRODUCT USED FOR UNKNOWN INDICATION
     Dosage: 68 MG
     Dates: start: 20110214, end: 20110419

REACTIONS (4)
  - STAPHYLOCOCCAL INFECTION [None]
  - IMPLANT SITE INFECTION [None]
  - MEDICAL DEVICE SITE REACTION [None]
  - GRANULOMA [None]
